FAERS Safety Report 9064682 (Version 1)
Quarter: 2013Q1

REPORT INFORMATION
  Report Type: Spontaneous
  Country: US (occurrence: US)
  Receive Date: 20130129
  Receipt Date: 20130129
  Transmission Date: 20140127
  Serious: Yes (Other)
  Sender: FDA-Public Use
  Company Number: US-RB-049051-13

PATIENT
  Age: 32 Year
  Sex: Female

DRUGS (6)
  1. SUBOXONE FILM [Suspect]
     Indication: DRUG DEPENDENCE
     Dosage: SUBOXONE FILM
     Route: 060
     Dates: start: 201301
  2. INDOMETHACIN [Suspect]
     Indication: TENDONITIS
     Dosage: DOSING DETAILS UNKNOWN
     Route: 048
     Dates: start: 201210
  3. LITHIUM [Suspect]
     Indication: BORDERLINE PERSONALITY DISORDER
     Dosage: DOSING DETAILS UNKNOWN
     Route: 048
     Dates: start: 201301, end: 20130113
  4. LITHIUM [Suspect]
     Indication: DEPRESSION
     Dosage: DOSING DETAILS UNKNOWN
     Route: 048
     Dates: start: 201301, end: 20130113
  5. PROZAC [Suspect]
     Indication: DEPRESSION
     Dosage: DOSING DETAILS UNKNOWN
     Route: 048
     Dates: start: 201301, end: 20130113
  6. LATUDA [Suspect]
     Indication: PSYCHOTIC DISORDER
     Dosage: DOSING DETAILS UNKNOWN
     Route: 048
     Dates: start: 201301

REACTIONS (1)
  - Haematemesis [Recovered/Resolved]
